FAERS Safety Report 9259023 (Version 3)
Quarter: 2013Q2

REPORT INFORMATION
  Report Type: Spontaneous
  Country: US (occurrence: US)
  Receive Date: 20130426
  Receipt Date: 20130521
  Transmission Date: 20140414
  Serious: Yes (Death, Life-Threatening, Hospitalization, Disabling, Other)
  Sender: FDA-Public Use
  Company Number: PHEH2013US009221

PATIENT
  Age: 59 Year
  Sex: Female
  Weight: 51.7 kg

DRUGS (15)
  1. GILENYA [Suspect]
     Indication: RELAPSING-REMITTING MULTIPLE SCLEROSIS
     Dosage: 0.5 MG, QD
     Route: 048
     Dates: start: 20110412, end: 20130422
  2. CALCIUM [Concomitant]
  3. CYMBALTA [Concomitant]
  4. CYMBALTA [Concomitant]
     Dosage: 60 MG, UNK
  5. FLUCONAZOLE [Concomitant]
  6. LORAZEPAM [Concomitant]
  7. LOSARTAN [Concomitant]
  8. LOTEMAX [Concomitant]
     Dosage: 0.5 %, QD
  9. PROBIOTICS [Concomitant]
  10. RESTASIS [Concomitant]
     Dosage: 0.05 %, QD
  11. SYNTHROID [Concomitant]
  12. TRAMADOL [Concomitant]
  13. TUMS [Concomitant]
  14. VITAMIN B12 + FOLIC ACID [Concomitant]
  15. VITAMIN D3 [Concomitant]

REACTIONS (25)
  - Glioblastoma [Fatal]
  - Central nervous system lesion [Fatal]
  - Confusional state [Fatal]
  - Convulsion [Fatal]
  - Myoclonus [Fatal]
  - Headache [Fatal]
  - Hemisensory neglect [Fatal]
  - Post procedural haemorrhage [Fatal]
  - Coma [Fatal]
  - Concussion [Recovering/Resolving]
  - Nausea [Unknown]
  - Vomiting [Unknown]
  - Dizziness [Recovering/Resolving]
  - Vision blurred [Recovering/Resolving]
  - Fall [Recovering/Resolving]
  - Encephalopathy [Unknown]
  - Balance disorder [Unknown]
  - Spinal osteoarthritis [Unknown]
  - Hyporeflexia [Unknown]
  - Hypersomnia [Unknown]
  - Amnesia [Unknown]
  - Muscle spasticity [Unknown]
  - Facial nerve disorder [Unknown]
  - Gait disturbance [Unknown]
  - Blood pressure systolic increased [Unknown]
